FAERS Safety Report 15473700 (Version 1)
Quarter: 2018Q4

REPORT INFORMATION
  Report Type: Report from Study
  Country: IT (occurrence: IT)
  Receive Date: 20181008
  Receipt Date: 20181008
  Transmission Date: 20190205
  Serious: Yes (Other)
  Sender: FDA-Public Use
  Company Number: IT-TEVA-2018-IT-961656

PATIENT
  Age: 68 Year
  Sex: Male

DRUGS (9)
  1. PANTOPRAZOLE [Concomitant]
     Active Substance: PANTOPRAZOLE
     Route: 065
  2. GEMCITABINE HYDROCHLORIDE. [Suspect]
     Active Substance: GEMCITABINE HYDROCHLORIDE
     Indication: BLADDER CANCER
     Route: 042
     Dates: start: 20180612, end: 20180817
  3. MICARDISPLUS 40 MG/12.5?MG TABLETS [Concomitant]
     Route: 065
  4. NEULASTA 6 MG SOLUTION FOR INJECTION [Concomitant]
     Route: 065
  5. DEPALGOS 10 MG + 325 MG COMPRESSE RIVESTITE CON FILM [Concomitant]
     Route: 065
  6. ABSTRAL COMPRESSE SUBLINGUALI DA 100 MICROGRAMMI [Concomitant]
     Route: 065
  7. CARBOPLATIN. [Suspect]
     Active Substance: CARBOPLATIN
     Indication: BLADDER CANCER
     Route: 042
     Dates: start: 20180612, end: 20180817
  8. MOVICOL [Concomitant]
     Active Substance: POLYETHYLENE GLYCOL 3350\POTASSIUM CHLORIDE\SODIUM BICARBONATE\SODIUM CHLORIDE
     Route: 065
  9. UROREC 4 MG HARD CAPSULES [Concomitant]
     Route: 065

REACTIONS (2)
  - Anaemia [Recovered/Resolved]
  - Thrombocytopenia [Recovered/Resolved]

NARRATIVE: CASE EVENT DATE: 20180803
